FAERS Safety Report 5575368-3 (Version None)
Quarter: 2007Q4

REPORT INFORMATION
  Report Type: 
  Country: None (occurrence: None)
  Receive Date: 20071221
  Receipt Date: 20071207
  Transmission Date: 20080405
  Serious: Yes (Hospitalization)
  Sender: FDA-Public Use
  Company Number: MEDI-0006174

PATIENT
  Age: 53 Year
  Sex: Male

DRUGS (9)
  1. ETHYOL [Suspect]
     Indication: RADIOTHERAPY
     Dosage: 500 MG, 1 IN 1 D, SUBCUTANEOUS; SUBCUTANEOUS
     Route: 058
     Dates: end: 20071107
  2. ETHYOL [Suspect]
     Indication: RADIOTHERAPY
     Dosage: 500 MG, 1 IN 1 D, SUBCUTANEOUS; SUBCUTANEOUS
     Route: 058
     Dates: start: 20071107
  3. RADIATION THERAPY [Concomitant]
  4. CISPLATIN [Suspect]
  5. ETOPOSIDE [Concomitant]
  6. NEXIUM (ESOMEPARZOLE MAGNESIUM) [Concomitant]
  7. LOMOTIL [Concomitant]
  8. KYTRIL [Concomitant]
  9. TRIPLE MIX [Concomitant]

REACTIONS (7)
  - HYPOMAGNESAEMIA [None]
  - MICROCYTOSIS [None]
  - PYREXIA [None]
  - SHOCK [None]
  - SYSTEMIC INFLAMMATORY RESPONSE SYNDROME [None]
  - TUMOUR LYSIS SYNDROME [None]
  - VIRAL INFECTION [None]
